FAERS Safety Report 8029890-0 (Version None)
Quarter: 2011Q4

REPORT INFORMATION
  Report Type: 
  Country: None (occurrence: None)
  Receive Date: 20111130
  Receipt Date: 20110817
  Transmission Date: 20120403
  Serious: Yes (Hospitalization, Other)
  Sender: FDA-Public Use
  Company Number: US201104005156

PATIENT
  Age: 59 Year
  Sex: Female
  Weight: 108.8 kg

DRUGS (20)
  1. CALCIUM 500+D3 (CALCIUM CARBONATE, COLECALCIFEROL) [Concomitant]
  2. TYLENOL /SCH/ (PARACETAMOL) [Concomitant]
  3. DIAMOX SRC [Concomitant]
  4. BUMETANIDE [Concomitant]
  5. BYSTOLIC [Concomitant]
  6. COUMADIN [Concomitant]
  7. HYZAAR [Concomitant]
  8. LISINOPRIL [Concomitant]
  9. SYNTHROID [Concomitant]
  10. BYETTA [Suspect]
     Indication: TYPE 2 DIABETES MELLITUS
     Dosage: 5 UG, BID, SUBCUTANEOUS, 10 UG, BID, SUBCUTANEOUS, 5 UG, BID, SUBCUTANEOUS
     Route: 058
     Dates: start: 20110413
  11. BYETTA [Suspect]
     Indication: TYPE 2 DIABETES MELLITUS
     Dosage: 5 UG, BID, SUBCUTANEOUS, 10 UG, BID, SUBCUTANEOUS, 5 UG, BID, SUBCUTANEOUS
     Route: 058
     Dates: start: 20091112
  12. BIOTIN (BIOTIN) [Concomitant]
  13. OMEPRAZOLE [Concomitant]
  14. ALLOPURINOL [Concomitant]
  15. CRESTOR [Concomitant]
  16. FISH OIL (FISH OIL) [Concomitant]
  17. XOPENEX HFA (LEVOSALBUTAMOL TARTRATE) [Concomitant]
  18. HUMULIN R [Concomitant]
  19. GLUCOSAMINE (GLUCOSAMINE) [Concomitant]
  20. HYDROCORTONE [Concomitant]

REACTIONS (4)
  - RENAL FAILURE [None]
  - PANCREATITIS [None]
  - WEIGHT FLUCTUATION [None]
  - OFF LABEL USE [None]
